FAERS Safety Report 22817186 (Version 2)
Quarter: 2025Q2

REPORT INFORMATION
  Report Type: Report from Study
  Country: US (occurrence: US)
  Receive Date: 20230812
  Receipt Date: 20250603
  Transmission Date: 20250717
  Serious: No
  Sender: NOVARTIS
  Company Number: US-002147023-NVSC2023US175787

PATIENT
  Sex: Female

DRUGS (1)
  1. KESIMPTA [Suspect]
     Active Substance: OFATUMUMAB
     Indication: Product used for unknown indication
     Dosage: 1 DOSAGE FORM, QMO (20MG/0.4ML)
     Route: 058

REACTIONS (1)
  - Maternal exposure during pregnancy [Unknown]
